FAERS Safety Report 5272618-8 (Version None)
Quarter: 2007Q1

REPORT INFORMATION
  Report Type: 
  Country: None (occurrence: None)
  Receive Date: 20070320
  Receipt Date: 20070320
  Transmission Date: 20070707
  Serious: Yes (Hospitalization)
  Sender: FDA-Public Use
  Company Number: None

PATIENT
  Age: 80 Year
  Sex: Female
  Weight: 74.8435 kg

DRUGS (1)
  1. RAZADYNE [Suspect]
     Indication: DEMENTIA
     Dosage: DAILY PO
     Route: 048
     Dates: start: 20070315, end: 20070317

REACTIONS (2)
  - HYPOTENSION [None]
  - SINUS BRADYCARDIA [None]
